FAERS Safety Report 5262404-7 (Version None)
Quarter: 2007Q1

REPORT INFORMATION
  Report Type: 
  Country: None (occurrence: None)
  Receive Date: 20070309
  Receipt Date: 20070309
  Transmission Date: 20070707
  Serious: Yes (Life-Threatening)
  Sender: FDA-Public Use
  Company Number: None

PATIENT
  Age: 58 Year
  Sex: Female

DRUGS (1)
  1. AMBIEN [Suspect]
     Dosage: 10MG HS PO
     Route: 048
     Dates: start: 20070302, end: 20070304

REACTIONS (4)
  - ABNORMAL BEHAVIOUR [None]
  - ABNORMAL DREAMS [None]
  - AMNESIA [None]
  - IMPAIRED DRIVING ABILITY [None]
